FAERS Safety Report 16031705 (Version 1)
Quarter: 2019Q1

REPORT INFORMATION
  Report Type: Spontaneous
  Country: CA (occurrence: CA)
  Receive Date: 20190304
  Receipt Date: 20190304
  Transmission Date: 20190418
  Serious: Yes (Other)
  Sender: FDA-Public Use
  Company Number: CA-PFIZER INC-2019092692

PATIENT
  Age: 72 Year
  Sex: Female

DRUGS (24)
  1. IGIVNEX [Suspect]
     Active Substance: HUMAN IMMUNOGLOBULIN G
     Indication: CHRONIC INFLAMMATORY DEMYELINATING POLYRADICULONEUROPATHY
     Dosage: 50 G, 1 EVERY 2 WEEK(S)
     Route: 042
  2. GLUCOPHAGE [Suspect]
     Active Substance: METFORMIN HYDROCHLORIDE
     Dosage: UNK
     Route: 065
  3. IMURAN [Suspect]
     Active Substance: AZATHIOPRINE
     Dosage: 50 MG, UNK
     Route: 065
  4. SECTRAL [Suspect]
     Active Substance: ACEBUTOLOL HYDROCHLORIDE
     Dosage: UNK
     Route: 065
  5. NORVASC [Suspect]
     Active Substance: AMLODIPINE BESYLATE
     Dosage: UNK
  6. IGIVNEX [Suspect]
     Active Substance: HUMAN IMMUNOGLOBULIN G
     Dosage: 20 G, UNK
     Route: 042
  7. SYNTHROID [Suspect]
     Active Substance: LEVOTHYROXINE SODIUM
     Dosage: UNK
     Route: 065
  8. NORVASC [Suspect]
     Active Substance: AMLODIPINE BESYLATE
     Dosage: UNK
     Route: 065
  9. HYDRODIURIL [Suspect]
     Active Substance: HYDROCHLOROTHIAZIDE
     Dosage: UNK
  10. LIPIDIL [Suspect]
     Active Substance: FENOFIBRATE
     Dosage: UNK
     Route: 065
  11. SYNTHROID [Suspect]
     Active Substance: LEVOTHYROXINE SODIUM
     Dosage: 50 G, 1 EVERY 1 WEEK(S)
     Route: 042
  12. GLUCOPHAGE [Suspect]
     Active Substance: METFORMIN HYDROCHLORIDE
     Dosage: UNK
  13. IMURAN [Suspect]
     Active Substance: AZATHIOPRINE
     Dosage: UNK
  14. LIPIDIL [Suspect]
     Active Substance: FENOFIBRATE
     Dosage: UNK
  15. NEURONTIN [Suspect]
     Active Substance: GABAPENTIN
     Dosage: UNK
     Route: 065
  16. IGIVNEX [Suspect]
     Active Substance: HUMAN IMMUNOGLOBULIN G
     Dosage: UNK
  17. LOSEC [Suspect]
     Active Substance: OMEPRAZOLE
     Dosage: UNK
     Route: 065
  18. LOSEC [Suspect]
     Active Substance: OMEPRAZOLE
     Dosage: UNK
  19. IMMUNOGLOBULIN HUMAN NORMAL [Suspect]
     Active Substance: HUMAN IMMUNOGLOBULIN G
     Dosage: 50 MG, 1 EVERY 2 WEEK(S)
     Route: 042
  20. IMMUNOGLOBULIN HUMAN NORMAL [Suspect]
     Active Substance: HUMAN IMMUNOGLOBULIN G
     Dosage: 20 G, 1 EVERY 1 WEEK(S)
     Route: 042
  21. SECTRAL [Suspect]
     Active Substance: ACEBUTOLOL HYDROCHLORIDE
     Dosage: UNK
  22. NEURONTIN [Suspect]
     Active Substance: GABAPENTIN
     Dosage: UNK
  23. HYDRODIURIL [Suspect]
     Active Substance: HYDROCHLOROTHIAZIDE
     Dosage: UNK
     Route: 065
  24. IMMUNOGLOBULIN HUMAN NORMAL [Suspect]
     Active Substance: HUMAN IMMUNOGLOBULIN G
     Indication: CHRONIC INFLAMMATORY DEMYELINATING POLYRADICULONEUROPATHY
     Dosage: 20 G, 1 EVERY 2 WEEK (S)
     Route: 042

REACTIONS (1)
  - Neutropenia [Unknown]
